FAERS Safety Report 4979507-4 (Version None)
Quarter: 2006Q2

REPORT INFORMATION
  Report Type: 
  Country: None (occurrence: None)
  Receive Date: 20060421
  Receipt Date: 20060411
  Transmission Date: 20061013
  Serious: Yes (Other)
  Sender: FDA-Public Use
  Company Number: 2006GB00613

PATIENT
  Age: 50 Year
  Sex: Male
  Weight: 67.5 kg

DRUGS (9)
  1. MERONEM [Suspect]
     Route: 042
     Dates: start: 20060315, end: 20060327
  2. OMEPRAZOLE [Concomitant]
     Route: 048
     Dates: end: 20060315
  3. MORPHINE [Concomitant]
     Route: 042
     Dates: start: 20060315, end: 20060327
  4. MIDAZOLAM HCL [Concomitant]
     Route: 042
     Dates: start: 20060315, end: 20060330
  5. PARACETAMOL [Concomitant]
     Route: 065
     Dates: start: 20060315, end: 20060328
  6. PROPOFOL [Concomitant]
     Route: 042
     Dates: start: 20060315
  7. DOBUTAMINE HCL [Concomitant]
     Route: 042
     Dates: start: 20060317
  8. FRAGMIN [Concomitant]
     Route: 042
     Dates: start: 20060319
  9. FRAGMIN [Concomitant]
     Route: 058
     Dates: start: 20060317, end: 20060323

REACTIONS (1)
  - HAEMOLYSIS [None]
